FAERS Safety Report 17958413 (Version 1)
Quarter: 2020Q2

REPORT INFORMATION
  Report Type: Spontaneous
  Country: RU (occurrence: RU)
  Receive Date: 20200629
  Receipt Date: 20200629
  Transmission Date: 20200714
  Serious: Yes (Other)
  Sender: FDA-Public Use
  Company Number: RU-US-PROVELL PHARMACEUTICALS LLC-9137617

PATIENT
  Age: 58 Year
  Sex: Female
  Weight: 78 kg

DRUGS (6)
  1. CETEBE [Concomitant]
     Indication: PRODUCT USED FOR UNKNOWN INDICATION
     Dates: start: 20200310
  2. VITAMIN D                          /00107901/ [Concomitant]
     Active Substance: ERGOCALCIFEROL
     Indication: PRODUCT USED FOR UNKNOWN INDICATION
     Dosage: 100 DROPS
     Dates: start: 201905, end: 20190520
  3. EUTHYROX [Suspect]
     Active Substance: LEVOTHYROXINE SODIUM
     Indication: POST PROCEDURAL HYPOTHYROIDISM
     Dosage: THERAPY START DATE : 11 DEC 2019 TILL 19 MAR 2020 (G003D1)?BATCH G006UG STARTED ON 20-MAR-2020
     Route: 048
  4. VITAMIN D                          /00107901/ [Concomitant]
     Active Substance: ERGOCALCIFEROL
     Dosage: 35 DROPS EVERY DAY
     Dates: start: 201910
  5. EUTHYROX [Suspect]
     Active Substance: LEVOTHYROXINE SODIUM
     Indication: POST PROCEDURAL HYPOTHYROIDISM
     Route: 048
     Dates: start: 20190928, end: 20191210
  6. VITAMIN D                          /00107901/ [Concomitant]
     Active Substance: ERGOCALCIFEROL
     Dosage: INTERMITTENTLY
     Dates: start: 201912, end: 20200220

REACTIONS (18)
  - Asthenia [Recovering/Resolving]
  - Pain [Not Recovered/Not Resolved]
  - Helicobacter test positive [Unknown]
  - Gastritis [Unknown]
  - Erosive oesophagitis [Unknown]
  - Eosinophil cationic protein increased [Recovering/Resolving]
  - Blood pressure increased [Recovered/Resolved]
  - Feeling abnormal [Recovered/Resolved]
  - Thyroxine increased [Not Recovered/Not Resolved]
  - Cystitis [Recovered/Resolved]
  - Body temperature increased [Recovered/Resolved]
  - Abdominal pain upper [Not Recovered/Not Resolved]
  - Vulvovaginal dryness [Unknown]
  - Duodenitis [Unknown]
  - Weight increased [Recovered/Resolved]
  - Chills [Recovered/Resolved]
  - Tri-iodothyronine increased [Not Recovered/Not Resolved]
  - Hepatic cyst [Unknown]

NARRATIVE: CASE EVENT DATE: 201912
